FAERS Safety Report 14092966 (Version 2)
Quarter: 2017Q4

REPORT INFORMATION
  Report Type: Report from Study
  Country: None (occurrence: CA)
  Receive Date: 20171016
  Receipt Date: 20171025
  Transmission Date: 20180321
  Serious: Yes (Death)
  Sender: FDA-Public Use
  Company Number: CA-ABBVIE-17P-028-2131401-00

PATIENT
  Age: 73 Year
  Sex: Male

DRUGS (1)
  1. VENETOCLAX. [Suspect]
     Active Substance: VENETOCLAX
     Indication: MANTLE CELL LYMPHOMA
     Route: 048
     Dates: start: 20170606

REACTIONS (4)
  - Malignant neoplasm progression [Fatal]
  - Death [Fatal]
  - Multiple organ dysfunction syndrome [Fatal]
  - Off label use [Unknown]

NARRATIVE: CASE EVENT DATE: 20170606
